FAERS Safety Report 26150871 (Version 1)
Quarter: 2025Q4

REPORT INFORMATION
  Report Type: Spontaneous
  Country: US (occurrence: US)
  Receive Date: 20251212
  Receipt Date: 20251212
  Transmission Date: 20260119
  Serious: Yes (Hospitalization, Other)
  Sender: ACCORD
  Company Number: US-Accord-517441

PATIENT
  Age: 79 Year
  Sex: Male

DRUGS (8)
  1. ETOPOSIDE [Suspect]
     Active Substance: ETOPOSIDE
     Indication: Haemophagocytic lymphohistiocytosis
     Dates: start: 2025
  2. CYCLOSPORINE [Suspect]
     Active Substance: CYCLOSPORINE
     Indication: Haemophagocytic lymphohistiocytosis
     Dates: start: 2025
  3. DEXAMETHASONE [Suspect]
     Active Substance: DEXAMETHASONE
     Indication: Haemophagocytic lymphohistiocytosis
     Dates: start: 2025
  4. ANAKINRA [Concomitant]
     Active Substance: ANAKINRA
     Dates: start: 2025
  5. PREDNISONE [Concomitant]
     Active Substance: PREDNISONE
     Indication: Haemophagocytic lymphohistiocytosis
     Dates: start: 2025
  6. RUXOLITINIB [Concomitant]
     Active Substance: RUXOLITINIB
     Dates: start: 2025
  7. TOCILIZUMAB [Concomitant]
     Active Substance: TOCILIZUMAB
     Indication: Cytokine release syndrome
     Dates: start: 2025
  8. TOCILIZUMAB [Concomitant]
     Active Substance: TOCILIZUMAB
     Indication: Immune effector cell-associated neurotoxicity syndrome
     Dates: start: 2025

REACTIONS (7)
  - Neutropenia [Recovering/Resolving]
  - Anaemia [Recovering/Resolving]
  - Thrombocytopenia [Recovering/Resolving]
  - Escherichia urinary tract infection [Unknown]
  - Prostatitis [Unknown]
  - Diverticulitis [Unknown]
  - Off label use [Unknown]

NARRATIVE: CASE EVENT DATE: 20250101
